FAERS Safety Report 19520600 (Version 1)
Quarter: 2021Q3

REPORT INFORMATION
  Report Type: Spontaneous
  Country: NL (occurrence: NO)
  Receive Date: 20210712
  Receipt Date: 20210712
  Transmission Date: 20211014
  Serious: Yes (Hospitalization)
  Sender: FDA-Public Use
  Company Number: NO-FRESENIUS KABI-FK202106915

PATIENT
  Age: 34 Year

DRUGS (4)
  1. REMIFENTANIL [Suspect]
     Active Substance: REMIFENTANIL
     Indication: ANAESTHESIA PROCEDURE
     Dosage: DOSAGE UNKNOWN, BATCH/LOT NO.: REPORTED AS {UNKNOWN}
     Route: 042
     Dates: start: 20210602, end: 20210602
  2. PROPOFOL (MANUFACTURER UNKNOWN) [Suspect]
     Active Substance: PROPOFOL
     Indication: ANAESTHESIA PROCEDURE
     Dosage: DOSAGE UNKNOWN, BATCH/LOT NO.: REPORTED AS {UNKNOWN}
     Route: 042
     Dates: start: 20210602, end: 20210602
  3. FENTANYL. [Suspect]
     Active Substance: FENTANYL
     Indication: ANAESTHESIA PROCEDURE
     Dosage: DOSAGE UNKNOWN, BATCH/LOT NO.: REPORTED AS {UNKNOWN}
     Route: 042
     Dates: start: 20210602, end: 20210602
  4. LATEX TAPE [Suspect]
     Active Substance: NATURAL LATEX RUBBER
     Indication: PRODUCT USED FOR UNKNOWN INDICATION
     Dosage: LATEX TAPE
     Route: 065
     Dates: start: 20210602, end: 20210602

REACTIONS (1)
  - Anaphylactic reaction [Recovered/Resolved]

NARRATIVE: CASE EVENT DATE: 20210602
